FAERS Safety Report 4838561-0 (Version None)
Quarter: 2005Q4

REPORT INFORMATION
  Report Type: 
  Country: None (occurrence: None)
  Receive Date: 20051123
  Receipt Date: 20051107
  Transmission Date: 20060501
  Serious: Yes (Hospitalization)
  Sender: FDA-Public Use
  Company Number: US015651

PATIENT
  Age: 36 Year
  Sex: Female
  Weight: 46.2669 kg

DRUGS (6)
  1. TIAGABINE HCL [Suspect]
     Indication: GENERALISED ANXIETY DISORDER
     Dosage: 6 MG BID ORAL
     Route: 048
     Dates: start: 20050503, end: 20050616
  2. TIAGABINE HCL [Suspect]
     Indication: GENERALISED ANXIETY DISORDER
     Dosage: 8 MG BID ORAL
     Route: 048
     Dates: start: 20050617, end: 20050617
  3. TIAGABINE HCL [Suspect]
     Indication: GENERALISED ANXIETY DISORDER
     Dosage: 6 MG BID ORAL
     Route: 048
     Dates: start: 20050619
  4. IBUPROFEN [Concomitant]
  5. CITRUCEL [Concomitant]
  6. GLYCERIN SUPPOSITORY [Concomitant]

REACTIONS (14)
  - APHASIA [None]
  - BLOOD PRESSURE DIASTOLIC INCREASED [None]
  - DIZZINESS [None]
  - EMOTIONAL DISTRESS [None]
  - GRAND MAL CONVULSION [None]
  - HEADACHE [None]
  - IMPAIRED DRIVING ABILITY [None]
  - MIGRAINE [None]
  - MUSCLE TWITCHING [None]
  - NAUSEA [None]
  - PANIC ATTACK [None]
  - POST-TRAUMATIC EPILEPSY [None]
  - VISION BLURRED [None]
  - VOMITING [None]
